FAERS Safety Report 9278740 (Version 4)
Quarter: 2013Q4

REPORT INFORMATION
  Report Type: Report from Study
  Country: FR (occurrence: FR)
  Receive Date: 20130508
  Receipt Date: 20131127
  Transmission Date: 20140711
  Serious: Yes (Death, Hospitalization)
  Sender: FDA-Public Use
  Company Number: FR-CELGENEUS-056-C4047-13050742

PATIENT
  Age: 53 Year
  Sex: Female

DRUGS (15)
  1. CC-4047 [Suspect]
     Indication: PLASMA CELL MYELOMA
     Dosage: 4 MILLIGRAM
     Route: 048
     Dates: start: 20130310, end: 20130401
  2. ENDOXAN [Concomitant]
     Indication: PRODUCT USED FOR UNKNOWN INDICATION
     Dosage: 50 MILLIGRAM
     Route: 065
     Dates: end: 20130401
  3. DEXAMETHASONE [Concomitant]
     Indication: PRODUCT USED FOR UNKNOWN INDICATION
     Dosage: 40 MILLIGRAM
     Route: 065
     Dates: end: 20130401
  4. ASPEGIC [Concomitant]
     Indication: PRODUCT USED FOR UNKNOWN INDICATION
     Route: 065
  5. ASPIRINE [Concomitant]
     Indication: THROMBOSIS PROPHYLAXIS
     Route: 065
  6. NACETYLCYSTEINE [Concomitant]
     Indication: HEPATITIS ACUTE
     Route: 065
  7. TAZOCILLINE [Concomitant]
     Indication: PRODUCT USED FOR UNKNOWN INDICATION
     Route: 065
     Dates: start: 20130402
  8. FOSCARNET [Concomitant]
     Indication: PRODUCT USED FOR UNKNOWN INDICATION
     Route: 065
     Dates: start: 20130403
  9. AMBISOME [Concomitant]
     Indication: PRODUCT USED FOR UNKNOWN INDICATION
     Route: 065
     Dates: start: 20130408, end: 20130410
  10. ZOPHREN [Concomitant]
     Indication: NAUSEA
     Dosage: 12 MILLIGRAM
     Route: 065
  11. ZOPHREN [Concomitant]
     Indication: HEPATITIS ACUTE
     Route: 065
  12. DUROGESIC [Concomitant]
     Indication: SOMNOLENCE
     Dosage: UG
     Route: 065
     Dates: start: 20130408, end: 20130408
  13. DUROGESIC [Concomitant]
     Indication: HEPATITIS ACUTE
     Route: 065
  14. ATROVENT [Concomitant]
     Indication: PRODUCT USED FOR UNKNOWN INDICATION
     Route: 065
  15. BRICANYL [Concomitant]
     Indication: PRODUCT USED FOR UNKNOWN INDICATION
     Route: 065

REACTIONS (2)
  - Hepatitis acute [Not Recovered/Not Resolved]
  - Hepatic failure [Fatal]
